FAERS Safety Report 8216177-6 (Version None)
Quarter: 2012Q1

REPORT INFORMATION
  Report Type: 
  Country: None (occurrence: None)
  Receive Date: 20120316
  Receipt Date: 20120308
  Transmission Date: 20120608
  Serious: Yes (Hospitalization)
  Sender: FDA-Public Use
  Company Number: US-GLAXOSMITHKLINE-A0961811A

PATIENT
  Age: 12 Year
  Sex: Female
  Weight: 37.4 kg

DRUGS (1)
  1. FLOLAN [Suspect]
     Indication: PULMONARY ARTERIAL HYPERTENSION
     Dosage: 57NGKM UNKNOWN
     Route: 042
     Dates: start: 20080806

REACTIONS (5)
  - ILL-DEFINED DISORDER [None]
  - PNEUMONIA [None]
  - SPUTUM DISCOLOURED [None]
  - PYREXIA [None]
  - UPPER RESPIRATORY TRACT INFECTION [None]
